FAERS Safety Report 9067313 (Version 2)
Quarter: 2013Q1

REPORT INFORMATION
  Report Type: Report from Study
  Country: US (occurrence: US)
  Receive Date: 20130214
  Receipt Date: 20130227
  Transmission Date: 20140127
  Serious: Yes (Death, Hospitalization)
  Sender: FDA-Public Use
  Company Number: US-CELGENEUS-163-C5013-13021546

PATIENT
  Age: 88 None
  Sex: Male

DRUGS (41)
  1. CC-5013 [Suspect]
     Indication: CHRONIC LYMPHOCYTIC LEUKAEMIA
     Dosage: 2.5 MILLIGRAM
     Route: 065
     Dates: start: 20121226, end: 20130109
  2. FLUTICASONE SALMETEROL [Concomitant]
     Indication: CHRONIC OBSTRUCTIVE PULMONARY DISEASE
     Dosage: 1
     Route: 048
     Dates: start: 201001, end: 20130120
  3. LEVOTHYROXINE [Concomitant]
     Indication: HYPOTHYROIDISM
     Dosage: 25 MICROGRAM
     Route: 048
     Dates: start: 2011
  4. FUROSEMIDE [Concomitant]
     Indication: OEDEMA PERIPHERAL
     Dosage: 20 MILLIGRAM
     Route: 048
     Dates: start: 201208, end: 20130120
  5. FUROSEMIDE [Concomitant]
     Dosage: 40 MILLIGRAM
     Route: 041
     Dates: start: 20130120, end: 20130120
  6. FUROSEMIDE [Concomitant]
     Dosage: 40 MILLIGRAM
     Route: 041
     Dates: start: 20130122, end: 20130122
  7. POTASSIUM [Concomitant]
     Indication: SUPPLEMENTATION THERAPY
     Dosage: 10 MILLIEQUIVALENTS
     Route: 048
     Dates: start: 201208, end: 20130120
  8. VITAMIN B12 [Concomitant]
     Indication: SUPPLEMENTATION THERAPY
     Dosage: 2500 MICROGRAM
     Route: 048
     Dates: start: 201207, end: 20130120
  9. MULTIVITAMINS [Concomitant]
     Indication: SUPPLEMENTATION THERAPY
     Dosage: 1 TABLET
     Route: 048
     Dates: start: 2000, end: 20130120
  10. IRON [Concomitant]
     Indication: SUPPLEMENTATION THERAPY
     Dosage: 65 MILLIGRAM
     Route: 048
     Dates: start: 201207, end: 20130120
  11. PREDNISONE [Concomitant]
     Indication: RESTRICTIVE PULMONARY DISEASE
     Dosage: 2.5 MILLIGRAM
     Route: 048
     Dates: start: 201202, end: 20121217
  12. PREDNISONE [Concomitant]
     Indication: CHRONIC OBSTRUCTIVE PULMONARY DISEASE
     Dosage: 20 MILLIGRAM
     Route: 048
     Dates: start: 20121212, end: 20121226
  13. PREDNISONE [Concomitant]
     Dosage: 15 MILLIGRAM
     Route: 048
     Dates: start: 20121227, end: 20130120
  14. TAMSULOSIN [Concomitant]
     Indication: BENIGN PROSTATIC HYPERPLASIA
     Dosage: .8 MILLIGRAM
     Route: 048
     Dates: start: 2009
  15. WARFARIN [Concomitant]
     Indication: THROMBOSIS PROPHYLAXIS
     Dosage: 5 MILLIGRAM
     Route: 048
     Dates: start: 2010
  16. DONEPEZIL [Concomitant]
     Indication: PROPHYLAXIS
     Dosage: 5 MILLIGRAM
     Route: 048
     Dates: start: 201208
  17. FISH OIL [Concomitant]
     Indication: SUPPLEMENTATION THERAPY
     Dosage: 1000 MILLIGRAM
     Route: 048
     Dates: start: 2000, end: 20130120
  18. CALCIUM [Concomitant]
     Indication: SUPPLEMENTATION THERAPY
     Dosage: 500 MILLIGRAM
     Route: 048
     Dates: start: 2000, end: 20130120
  19. OXYGEN [Concomitant]
     Indication: CHRONIC OBSTRUCTIVE PULMONARY DISEASE
     Dosage: 6 LITERS
     Route: 045
     Dates: start: 201209
  20. ALLOPURINOL [Concomitant]
     Indication: PROPHYLAXIS
     Dosage: 100 MILLIGRAM
     Route: 048
     Dates: start: 20121223, end: 20121228
  21. ALLOPURINOL [Concomitant]
     Dosage: 100 MILLIGRAM
     Route: 048
     Dates: start: 20130102, end: 20130110
  22. LORATADINE [Concomitant]
     Indication: NASAL CONGESTION
     Dosage: 10 MILLIGRAM
     Route: 048
     Dates: start: 20121228, end: 20121230
  23. LORATADINE [Concomitant]
     Dosage: 10 MILLIGRAM
     Route: 048
     Dates: start: 20130104, end: 20130120
  24. DIPHENHYDRAMINE [Concomitant]
     Indication: RASH MACULAR
     Dosage: 25 MILLIGRAM
     Route: 048
     Dates: start: 20121228, end: 20121230
  25. DIPHENHYDRAMINE [Concomitant]
     Indication: INSOMNIA
     Route: 048
     Dates: start: 20130120, end: 20130124
  26. LEVOFLOXACIN [Concomitant]
     Indication: PULMONARY CONGESTION
     Dosage: 750 MILLIGRAM
     Route: 048
     Dates: start: 20130121, end: 20130121
  27. ALBUTEROL-IPRATROPIUM [Concomitant]
     Indication: DYSPNOEA
     Dosage: 12 MILLILITER
     Route: 048
     Dates: start: 20130121, end: 20130124
  28. GUAIFENESIN [Concomitant]
     Indication: PULMONARY CONGESTION
     Dosage: 1200 MILLIGRAM
     Route: 048
     Dates: start: 20130124
  29. INSULIN ISOPHANE [Concomitant]
     Indication: DIABETES MELLITUS
     Dosage: 10 UNITS
     Route: 058
     Dates: start: 20130123, end: 20130124
  30. INSULIN ISOPHANE [Concomitant]
     Dosage: 75/25 8 UNITS
     Route: 065
  31. INSULIN LISPRO [Concomitant]
     Indication: DIABETES MELLITUS
     Dosage: 2 UNITS
     Route: 058
     Dates: start: 20130122
  32. METHYLPREDNISOLONE [Concomitant]
     Indication: PULMONARY CONGESTION
     Dosage: 80 MILLIGRAM
     Route: 041
     Dates: start: 20130120, end: 20130124
  33. NYSTATIN [Concomitant]
     Indication: CANDIDA INFECTION
     Dosage: 500,000 UNITS
     Route: 048
     Dates: start: 20130121
  34. OXYMETAZOLINE [Concomitant]
     Indication: PULMONARY CONGESTION
     Dosage: 2 SPRAYS
     Route: 045
     Dates: start: 20130121, end: 20130124
  35. SODIUM CHLORIDE [Concomitant]
     Indication: PULMONARY CONGESTION
     Dosage: 6 MILLILITER
     Route: 041
     Dates: start: 20130120, end: 20130124
  36. SODIUM CHLORIDE [Concomitant]
     Dosage: 3 SPRAYS
     Route: 045
     Dates: start: 20130121
  37. MAGIC MOUTHWASH [Concomitant]
     Indication: ORAL DISCOMFORT
     Dosage: 10 MILLILITER
     Route: 048
     Dates: start: 20130123
  38. LIDOCAINE SWISH AND SPIT [Concomitant]
     Indication: PRODUCT USED FOR UNKNOWN INDICATION
     Dosage: 30 MILLILITER
     Route: 065
  39. ADVAIR [Concomitant]
     Indication: PRODUCT USED FOR UNKNOWN INDICATION
     Dosage: 250/50 1 PUFF
     Route: 065
  40. GABAPENTIN [Concomitant]
     Indication: PRODUCT USED FOR UNKNOWN INDICATION
     Route: 065
  41. CLOTRIMAZOLE [Concomitant]
     Indication: PRODUCT USED FOR UNKNOWN INDICATION
     Dosage: 30 MILLIGRAM
     Route: 065

REACTIONS (2)
  - Cardiopulmonary failure [Fatal]
  - Pneumonia [Recovered/Resolved]
